FAERS Safety Report 8263309-X (Version None)
Quarter: 2012Q2

REPORT INFORMATION
  Report Type: 
  Country: None (occurrence: None)
  Receive Date: 20120405
  Receipt Date: 20120323
  Transmission Date: 20120825
  Serious: Yes (Hospitalization)
  Sender: FDA-Public Use
  Company Number: US-FRI-1000029173

PATIENT
  Sex: Male

DRUGS (2)
  1. CELEXA [Suspect]
     Indication: MAJOR DEPRESSION
     Route: 048
     Dates: start: 20110101, end: 20110526
  2. LUAF41156 [Suspect]
     Indication: MAJOR DEPRESSION
     Dates: start: 20110512, end: 20110526

REACTIONS (10)
  - ANXIETY [None]
  - IMPULSE-CONTROL DISORDER [None]
  - TACHYPHRENIA [None]
  - INSOMNIA [None]
  - PANIC ATTACK [None]
  - MOOD SWINGS [None]
  - SUICIDAL IDEATION [None]
  - DEPRESSED MOOD [None]
  - PSYCHOMOTOR HYPERACTIVITY [None]
  - ABNORMAL BEHAVIOUR [None]
